FAERS Safety Report 5905327-X (Version None)
Quarter: 2008Q4

REPORT INFORMATION
  Report Type: 
  Country: None (occurrence: None)
  Receive Date: 20081001
  Receipt Date: 20080919
  Transmission Date: 20090506
  Serious: Yes (Other)
  Sender: FDA-Public Use
  Company Number: US-PFIZER INC-2008077817

PATIENT
  Sex: Female
  Weight: 86.2 kg

DRUGS (6)
  1. CHANTIX [Suspect]
     Indication: SMOKING CESSATION THERAPY
     Dates: start: 20080101, end: 20080906
  2. EFFEXOR [Concomitant]
  3. VIVELLE-DOT [Concomitant]
  4. NEURONTIN [Concomitant]
  5. COPAXONE [Concomitant]
  6. PRILOSEC [Concomitant]

REACTIONS (6)
  - AGITATION [None]
  - DELUSION [None]
  - DEPRESSED MOOD [None]
  - HOMICIDAL IDEATION [None]
  - PSYCHOTIC DISORDER [None]
  - SUICIDAL IDEATION [None]
